FAERS Safety Report 8964114 (Version 1)
Quarter: 2012Q4

REPORT INFORMATION
  Report Type: 
  Country: US (occurrence: US)
  Receive Date: 20121214
  Receipt Date: 20121214
  Transmission Date: 20130627
  Serious: No
  Sender: FDA-Public Use
  Company Number: US-PFIZER INC-2012315411

PATIENT
  Age: 53 Year
  Sex: Female
  Weight: 63.49 kg

DRUGS (6)
  1. CHANTIX [Suspect]
     Indication: SMOKING CESSATION THERAPY
     Dosage: UNK
     Dates: start: 20121112, end: 20121203
  2. VICODIN [Concomitant]
     Indication: PAIN
     Dosage: 500 mg, as needed
  3. ATENOLOL [Concomitant]
     Indication: BLOOD PRESSURE ABNORMAL
     Dosage: 25 mg, 2x/day
  4. LISINOPRIL [Concomitant]
     Indication: BLOOD PRESSURE ABNORMAL
     Dosage: 10 mg, daily
  5. XANAX [Concomitant]
     Dosage: 0.25 mg, as needed
  6. ESTRADIOL [Concomitant]
     Dosage: 1 mg, daily

REACTIONS (1)
  - Nausea [Unknown]
